FAERS Safety Report 5394459-3 (Version None)
Quarter: 2007Q3

REPORT INFORMATION
  Report Type: 
  Country: None (occurrence: None)
  Receive Date: 20070723
  Receipt Date: 20070523
  Transmission Date: 20080115
  Serious: No
  Sender: FDA-Public Use
  Company Number: US-AMGEN-US225878

PATIENT
  Sex: Female

DRUGS (7)
  1. VECTIBIX [Suspect]
     Indication: COLORECTAL CANCER
     Route: 042
     Dates: start: 20070306
  2. CLINDAMYCIN HCL [Concomitant]
     Route: 061
     Dates: start: 20070520
  3. COUMADIN [Concomitant]
     Route: 065
  4. LORAZEPAM [Concomitant]
     Route: 065
  5. FERROUS SULFATE [Concomitant]
     Route: 065
  6. SYNTHROID [Concomitant]
     Route: 065
  7. ARTIFICIAL TEARS [Concomitant]
     Route: 047
     Dates: start: 20070520

REACTIONS (2)
  - DRY EYE [None]
  - RASH [None]
